FAERS Safety Report 12912266 (Version 4)
Quarter: 2016Q4

REPORT INFORMATION
  Report Type: Report from Study
  Country: BG (occurrence: BG)
  Receive Date: 20161104
  Receipt Date: 20161227
  Transmission Date: 20170207
  Serious: Yes (Death, Other)
  Sender: FDA-Public Use
  Company Number: BG-ASTRAZENECA-2016SF03680

PATIENT
  Sex: Female

DRUGS (6)
  1. TAGRISSO [Suspect]
     Active Substance: OSIMERTINIB
     Indication: NON-SMALL CELL LUNG CANCER
     Route: 048
  2. TAGRISSO [Suspect]
     Active Substance: OSIMERTINIB
     Indication: NON-SMALL CELL LUNG CANCER
     Route: 048
  3. TARGIN [Concomitant]
     Active Substance: NALOXONE HYDROCHLORIDE\OXYCODONE HYDROCHLORIDE
     Indication: ANALGESIC THERAPY
  4. SOLPADEINE [Concomitant]
     Indication: ANALGESIC THERAPY
  5. BENALGIN [Concomitant]
     Indication: ANALGESIC THERAPY
  6. ANTIHYPERTENSIVE [Concomitant]
     Active Substance: UNSPECIFIED INGREDIENT
     Indication: ANALGESIC THERAPY

REACTIONS (6)
  - Fatigue [Unknown]
  - Metastases to bone [Unknown]
  - Pleural effusion [Unknown]
  - Weight decreased [Unknown]
  - Malignant neoplasm progression [Fatal]
  - Decreased appetite [Unknown]
